FAERS Safety Report 4993655-4 (Version None)
Quarter: 2006Q2

REPORT INFORMATION
  Report Type: 
  Country: None (occurrence: None)
  Receive Date: 20060504
  Receipt Date: 20060504
  Transmission Date: 20061013
  Serious: No
  Sender: FDA-Public Use
  Company Number: None

PATIENT

DRUGS (1)
  1. RELAFEN [Suspect]

REACTIONS (2)
  - DRUG EFFECT DECREASED [None]
  - STOMACH DISCOMFORT [None]
